FAERS Safety Report 5235149-7 (Version None)
Quarter: 2007Q1

REPORT INFORMATION
  Report Type: 
  Country: None (occurrence: None)
  Receive Date: 20070207
  Receipt Date: 20070124
  Transmission Date: 20070707
  Serious: Yes (Life-Threatening, Hospitalization, Other)
  Sender: FDA-Public Use
  Company Number: ST-2006-009415

PATIENT
  Age: 80 Year
  Sex: Female
  Weight: 43 kg

DRUGS (11)
  1. OLMETEC [Suspect]
     Indication: HYPERTENSION
     Dosage: 20 MG QD PO
     Route: 048
     Dates: start: 20050521, end: 20061115
  2. FOSAMAC [Concomitant]
  3. LENDORMIN [Concomitant]
  4. TICLOPIDINE HCL [Concomitant]
  5. METHYLCOBAL [Concomitant]
  6. ANPLAG [Concomitant]
  7. MEXITIL [Concomitant]
  8. KETOPROFEN [Concomitant]
  9. FARNEZONE [Concomitant]
  10. AMLODIPINE [Concomitant]
  11. ADALAT [Concomitant]

REACTIONS (1)
  - HYPOGLYCAEMIC UNCONSCIOUSNESS [None]
